FAERS Safety Report 25815568 (Version 1)
Quarter: 2025Q3

REPORT INFORMATION
  Report Type: Spontaneous
  Country: CN (occurrence: CN)
  Receive Date: 20250918
  Receipt Date: 20250918
  Transmission Date: 20251021
  Serious: Yes (Other)
  Sender: ROCHE
  Company Number: CN-002147023-NVSC2025CN140053

PATIENT
  Age: 68 Year
  Sex: Female
  Weight: 56 kg

DRUGS (2)
  1. LUCENTIS [Suspect]
     Active Substance: RANIBIZUMAB
     Indication: Choroidal neovascularisation
     Dosage: 0.165 ML, QD (INTRAOCULAR USE)
     Route: 050
     Dates: start: 20250830, end: 20250830
  2. LUCENTIS [Suspect]
     Active Substance: RANIBIZUMAB
     Indication: Cystoid macular oedema

REACTIONS (9)
  - Intraocular pressure increased [Recovered/Resolved]
  - Optic discs blurred [Unknown]
  - Foreign body sensation in eyes [Recovered/Resolved]
  - Conjunctival hyperaemia [Unknown]
  - Corneal oedema [Unknown]
  - Corneal light reflex test abnormal [Unknown]
  - Vitreous opacities [Unknown]
  - Fundoscopy abnormal [Unknown]
  - Visual acuity reduced [Recovering/Resolving]

NARRATIVE: CASE EVENT DATE: 20250830
